FAERS Safety Report 14022055 (Version 1)
Quarter: 2017Q3

REPORT INFORMATION
  Report Type: Spontaneous
  Country: US (occurrence: US)
  Receive Date: 20170928
  Receipt Date: 20170928
  Transmission Date: 20171128
  Serious: Yes (Other)
  Sender: FDA-Public Use
  Company Number: None

PATIENT
  Sex: Female
  Weight: 72 kg

DRUGS (10)
  1. TOPROL SUCC ER [Concomitant]
  2. PEPCID [Concomitant]
     Active Substance: FAMOTIDINE
  3. ELIQUIS [Concomitant]
     Active Substance: APIXABAN
  4. FLECAINIDE [Concomitant]
     Active Substance: FLECAINIDE
  5. MELATONIN [Concomitant]
     Active Substance: MELATONIN
  6. NEXIUM [Concomitant]
     Active Substance: ESOMEPRAZOLE MAGNESIUM
  7. ATORVASTATIN [Concomitant]
     Active Substance: ATORVASTATIN
  8. CARDIZEM [Concomitant]
     Active Substance: DILTIAZEM HYDROCHLORIDE
  9. RECLAST [Suspect]
     Active Substance: ZOLEDRONIC ACID
     Indication: OSTEITIS DEFORMANS
     Dosage: INTRAVENOUS ONCE A YEAR
     Route: 042
     Dates: start: 20170915, end: 20170915
  10. IMDUR MN ER [Concomitant]

REACTIONS (1)
  - Uveitis [None]

NARRATIVE: CASE EVENT DATE: 20170915
